FAERS Safety Report 4892335-3 (Version None)
Quarter: 2006Q1

REPORT INFORMATION
  Report Type: 
  Country: None (occurrence: None)
  Receive Date: 20060126
  Receipt Date: 20060123
  Transmission Date: 20060701
  Serious: Yes (Hospitalization)
  Sender: FDA-Public Use
  Company Number: US-GLAXOSMITHKLINE-A0590474A

PATIENT
  Age: 22 Year
  Sex: Male

DRUGS (2)
  1. PAXIL [Suspect]
     Dosage: 25MG PER DAY
     Route: 048
  2. NO CONCURRENT MEDICATION [Concomitant]

REACTIONS (2)
  - BIPOLAR DISORDER [None]
  - MANIA [None]
